FAERS Safety Report 10842243 (Version 2)
Quarter: 2015Q1

REPORT INFORMATION
  Report Type: Spontaneous
  Country: US (occurrence: US)
  Receive Date: 20150220
  Receipt Date: 20150319
  Transmission Date: 20150721
  Serious: Yes (Death, Other)
  Sender: FDA-Public Use
  Company Number: US-ASTRAZENECA-2013SE77111

PATIENT
  Sex: Male
  Weight: 84.8 kg

DRUGS (27)
  1. ARIXTRA [Concomitant]
     Active Substance: FONDAPARINUX SODIUM
  2. NOVOLOG [Concomitant]
     Active Substance: INSULIN ASPART
     Dates: start: 20111011
  3. DRONABINOL. [Concomitant]
     Active Substance: DRONABINOL
     Dates: start: 20100518
  4. PERCOCET [Concomitant]
     Active Substance: ACETAMINOPHEN\OXYCODONE HYDROCHLORIDE
  5. OMEPRAZOLE. [Concomitant]
     Active Substance: OMEPRAZOLE
     Dates: start: 20101120
  6. LASIX [Concomitant]
     Active Substance: FUROSEMIDE
     Dates: start: 201110
  7. BYETTA [Suspect]
     Active Substance: EXENATIDE
     Indication: TYPE 2 DIABETES MELLITUS
     Route: 065
     Dates: start: 20050616, end: 20090114
  8. XELODA [Concomitant]
     Active Substance: CAPECITABINE
  9. PANCREATIC ENZYME [Concomitant]
  10. METFORMIN HCL [Concomitant]
     Active Substance: METFORMIN HYDROCHLORIDE
     Dates: start: 20100306
  11. URSODIOL. [Concomitant]
     Active Substance: URSODIOL
     Dates: start: 20101002
  12. FLORASTOR [Concomitant]
     Active Substance: SACCHAROMYCES CEREVISIAE
  13. MARINOL [Concomitant]
     Active Substance: DRONABINOL
  14. COLCHICINE. [Concomitant]
     Active Substance: COLCHICINE
     Dates: start: 20100709
  15. FLUCONAZOLE. [Concomitant]
     Active Substance: FLUCONAZOLE
     Dates: start: 20100923
  16. DOXYCYCLINE. [Concomitant]
     Active Substance: DOXYCYCLINE
  17. GLYBURIDE. [Concomitant]
     Active Substance: GLYBURIDE
     Dates: start: 20100306
  18. METOPROLOL TARTRATE. [Concomitant]
     Active Substance: METOPROLOL TARTRATE
     Dates: start: 20100621
  19. LEXAPRO [Concomitant]
     Active Substance: ESCITALOPRAM OXALATE
  20. VITAMIN D [Concomitant]
     Active Substance: CHOLECALCIFEROL
  21. NEXAVAR [Concomitant]
     Active Substance: SORAFENIB
  22. NEXIUM [Concomitant]
     Active Substance: ESOMEPRAZOLE MAGNESIUM
     Dates: start: 20100810
  23. LEVAQUIN [Concomitant]
     Active Substance: LEVOFLOXACIN
  24. COZAAR [Concomitant]
     Active Substance: LOSARTAN POTASSIUM
     Dates: start: 20100320
  25. METOCLOPRAMIDE HCL [Concomitant]
     Active Substance: METOCLOPRAMIDE HYDROCHLORIDE
     Dates: start: 20100621
  26. TARCEVA [Concomitant]
     Active Substance: ERLOTINIB HYDROCHLORIDE
     Dates: start: 20100217
  27. PREDNISONE. [Concomitant]
     Active Substance: PREDNISONE
     Dates: start: 20110523

REACTIONS (1)
  - Pancreatic carcinoma metastatic [Fatal]
